FAERS Safety Report 4796843-5 (Version None)
Quarter: 2005Q4

REPORT INFORMATION
  Report Type: 
  Country: None (occurrence: None)
  Receive Date: 20051013
  Receipt Date: 20051004
  Transmission Date: 20060501
  Serious: Yes (Hospitalization)
  Sender: FDA-Public Use
  Company Number: PHNU2005DE03349

PATIENT
  Sex: Female

DRUGS (4)
  1. AREDIA [Suspect]
     Indication: OSTEOPOROSIS
     Dosage: 30 MG, Q3MO
     Route: 042
     Dates: start: 20040701
  2. NORVASC [Concomitant]
     Route: 048
  3. SORTIS [Concomitant]
     Route: 048
  4. DELIX PLUS [Concomitant]
     Route: 048

REACTIONS (4)
  - BURSA REMOVAL [None]
  - BURSITIS [None]
  - NUCLEAR MAGNETIC RESONANCE IMAGING ABNORMAL [None]
  - X-RAY ABNORMAL [None]
